FAERS Safety Report 19056684 (Version 1)
Quarter: 2021Q1

REPORT INFORMATION
  Report Type: Spontaneous
  Country: GB (occurrence: GB)
  Receive Date: 20210325
  Receipt Date: 20210325
  Transmission Date: 20210420
  Serious: Yes (Other)
  Sender: FDA-Public Use
  Company Number: GB-MYLANLABS-2021M1016390

PATIENT
  Age: 22 Year
  Sex: Female
  Weight: 63 kg

DRUGS (3)
  1. DOXYCYCLINE. [Suspect]
     Active Substance: DOXYCYCLINE
     Indication: ILL-DEFINED DISORDER
     Dosage: 100 MILLIGRAM
     Route: 048
     Dates: start: 20200309
  2. DOXYCYCLINE. [Suspect]
     Active Substance: DOXYCYCLINE
     Indication: INFECTION PROPHYLAXIS
  3. OXYTETRACYCLINE [Concomitant]
     Active Substance: OXYTETRACYCLINE
     Indication: ILL-DEFINED DISORDER
     Dosage: UNK

REACTIONS (1)
  - Candida infection [Not Recovered/Not Resolved]

NARRATIVE: CASE EVENT DATE: 20210313
